FAERS Safety Report 12410316 (Version 1)
Quarter: 2016Q2

REPORT INFORMATION
  Report Type: Spontaneous
  Country: GB (occurrence: GB)
  Receive Date: 20160527
  Receipt Date: 20160527
  Transmission Date: 20160815
  Serious: Yes (Hospitalization)
  Sender: FDA-Public Use
  Company Number: GB-ACCORD-040765

PATIENT
  Age: 8 Year
  Sex: Male
  Weight: 32.8 kg

DRUGS (4)
  1. EPOETIN ALFA HEXEL [Concomitant]
  2. ALFACALCIDOL [Concomitant]
     Active Substance: ALFACALCIDOL
  3. AMLODIPINE [Suspect]
     Active Substance: AMLODIPINE BESYLATE
     Indication: HYPERTENSION
     Dosage: EARLIER RECEIVED 10MG ONCE DAILY THEN DOSE INCREASED TO 10MG TWICE DAILY
     Dates: start: 20160327, end: 20160427
  4. ATENOLOL/ATENOLOL HYDROCHLORIDE [Concomitant]

REACTIONS (6)
  - Cardiomegaly [Unknown]
  - Dilatation ventricular [Unknown]
  - Cardiac failure [Recovering/Resolving]
  - Hepatomegaly [Unknown]
  - Pleural effusion [Unknown]
  - Pericardial effusion [Unknown]

NARRATIVE: CASE EVENT DATE: 20160427
